FAERS Safety Report 9974036 (Version 2)
Quarter: 2014Q2

REPORT INFORMATION
  Report Type: Spontaneous
  Country: DE (occurrence: DE)
  Receive Date: 20140306
  Receipt Date: 20140523
  Transmission Date: 20141212
  Serious: Yes (Other)
  Sender: FDA-Public Use
  Company Number: DE-ASTRAZENECA-2014SE14707

PATIENT
  Sex: 0
  Weight: 5 kg

DRUGS (1)
  1. NEXIUM [Suspect]
     Route: 050
     Dates: start: 201402

REACTIONS (2)
  - Epilepsy [Unknown]
  - Hypoglycaemia [Unknown]
